FAERS Safety Report 9572937 (Version 2)
Quarter: 2013Q4

REPORT INFORMATION
  Report Type: Spontaneous
  Country: US (occurrence: US)
  Receive Date: 20131001
  Receipt Date: 20131218
  Transmission Date: 20140711
  Serious: No
  Sender: FDA-Public Use
  Company Number: US-BIOGENIDEC-2013BI068864

PATIENT
  Age: 48 Year
  Sex: Female
  Weight: 59 kg

DRUGS (2)
  1. TECFIDERA [Suspect]
     Indication: MULTIPLE SCLEROSIS
     Route: 048
     Dates: start: 20130627
  2. TECFIDERA [Suspect]
     Indication: MULTIPLE SCLEROSIS
     Route: 048

REACTIONS (11)
  - Prescribed underdose [Unknown]
  - Insomnia [Not Recovered/Not Resolved]
  - Fall [Recovered/Resolved]
  - Incontinence [Unknown]
  - Diarrhoea [Unknown]
  - Abdominal pain upper [Unknown]
  - Flushing [Unknown]
  - Dyspepsia [Not Recovered/Not Resolved]
  - Nausea [Recovered/Resolved]
  - Abdominal discomfort [Unknown]
  - Faecal incontinence [Unknown]
